FAERS Safety Report 7221949-0 (Version None)
Quarter: 2011Q1

REPORT INFORMATION
  Report Type: 
  Country: None (occurrence: None)
  Receive Date: 20110112
  Receipt Date: 20110107
  Transmission Date: 20110831
  Serious: Yes (Life-Threatening, Hospitalization, Other)
  Sender: FDA-Public Use
  Company Number: B0689630A

PATIENT
  Sex: Female
  Weight: 89 kg

DRUGS (4)
  1. RIVOTRIL [Suspect]
     Dosage: 5DROP PER DAY
     Route: 048
  2. TEGRETOL [Suspect]
     Indication: EPILEPSY
     Dosage: 400MG TWICE PER DAY
     Route: 048
  3. LAMICTAL [Suspect]
     Indication: EPILEPSY
     Route: 048
  4. KEPPRA [Suspect]
     Indication: EPILEPSY
     Dosage: 1250MG TWICE PER DAY
     Route: 048

REACTIONS (10)
  - DECREASED ACTIVITY [None]
  - DRUG LEVEL DECREASED [None]
  - SOMNOLENCE [None]
  - THERAPY REGIMEN CHANGED [None]
  - DRUG CLEARANCE INCREASED [None]
  - SEDATION [None]
  - DRUG EFFECT DECREASED [None]
  - CONVULSION [None]
  - SELF-MEDICATION [None]
  - DRUG EXPOSURE DURING PREGNANCY [None]
